FAERS Safety Report 9233566 (Version 1)
Quarter: 2013Q2

REPORT INFORMATION
  Report Type: Spontaneous
  Country: US (occurrence: US)
  Receive Date: 20130416
  Receipt Date: 20130416
  Transmission Date: 20140414
  Serious: No
  Sender: FDA-Public Use
  Company Number: US-BANPHARM-20120329

PATIENT
  Age: 46 Year
  Sex: Female
  Weight: 54.43 kg

DRUGS (1)
  1. ALEVE LIQUID GELS 220MG [Suspect]
     Route: 048
     Dates: start: 201210

REACTIONS (5)
  - Nausea [Recovered/Resolved]
  - Retching [Recovered/Resolved]
  - Headache [Recovered/Resolved]
  - Feeling of body temperature change [Recovered/Resolved]
  - Hyperhidrosis [Recovered/Resolved]
